FAERS Safety Report 10394940 (Version 3)
Quarter: 2014Q3

REPORT INFORMATION
  Report Type: Spontaneous
  Country: US (occurrence: US)
  Receive Date: 20140820
  Receipt Date: 20140918
  Transmission Date: 20150326
  Serious: No
  Sender: FDA-Public Use
  Company Number: US-B.I. PHARMACEUTICALS,INC./RIDGEFIELD-2014-BI-38090BP

PATIENT
  Age: 76 Year
  Sex: Female
  Weight: 78 kg

DRUGS (12)
  1. RENAL SOFT GEL [Concomitant]
     Indication: DIALYSIS
  2. LEVOTHYROXINE [Concomitant]
     Active Substance: LEVOTHYROXINE
     Dosage: 17.8571 MCG
     Route: 048
  3. GABAPENTIN. [Concomitant]
     Active Substance: GABAPENTIN
     Indication: RESTLESS LEGS SYNDROME
     Dosage: 300 MG
     Route: 048
  4. FUROSEMIDE. [Concomitant]
     Active Substance: FUROSEMIDE
     Indication: FLUID RETENTION
     Dosage: 100 MG
     Route: 048
     Dates: start: 201201
  5. ASPIRIN. [Concomitant]
     Active Substance: ASPIRIN
     Indication: ROUTINE HEALTH MAINTENANCE
     Dosage: 81 MG
     Route: 048
  6. DOCUSATE SODIUM. [Concomitant]
     Active Substance: DOCUSATE SODIUM
     Indication: FAECES HARD
     Dosage: 200 MG
     Route: 048
  7. SPIRIVA [Suspect]
     Active Substance: TIOTROPIUM BROMIDE MONOHYDRATE
     Indication: CHRONIC OBSTRUCTIVE PULMONARY DISEASE
     Dosage: 18 MCG
     Route: 055
     Dates: start: 201311
  8. CARDIZEM [Concomitant]
     Active Substance: DILTIAZEM HYDROCHLORIDE
     Indication: ARRHYTHMIA
     Dosage: 180 MG
     Route: 048
  9. LEVOTHYROXINE [Concomitant]
     Active Substance: LEVOTHYROXINE
     Indication: HYPERTHYROIDISM
     Dosage: 107.1429 MCG
     Route: 048
  10. RENAL SOFT GEL [Concomitant]
     Indication: RENAL FAILURE
     Dosage: 1 ANZ
     Route: 048
     Dates: start: 201201
  11. SIMVASTSTIN [Concomitant]
     Indication: BLOOD CHOLESTEROL INCREASED
     Dosage: 40 MG
     Route: 048
     Dates: start: 2009
  12. RENVELA [Concomitant]
     Active Substance: SEVELAMER CARBONATE
     Indication: RENAL FAILURE
     Route: 048

REACTIONS (2)
  - Product quality issue [Unknown]
  - Dyspnoea [Unknown]

NARRATIVE: CASE EVENT DATE: 201311
